FAERS Safety Report 21597834 (Version 1)
Quarter: 2022Q4

REPORT INFORMATION
  Report Type: Report from Study
  Country: CO (occurrence: CO)
  Receive Date: 20221115
  Receipt Date: 20221115
  Transmission Date: 20230113
  Serious: Yes (Hospitalization)
  Sender: FDA-Public Use
  Company Number: CO-002147023-NVSC2022CO069097

PATIENT
  Sex: Male

DRUGS (4)
  1. ELTROMBOPAG OLAMINE [Suspect]
     Active Substance: ELTROMBOPAG OLAMINE
     Indication: Immune thrombocytopenia
     Dosage: 25 MG, QD
     Route: 048
  2. ELTROMBOPAG OLAMINE [Suspect]
     Active Substance: ELTROMBOPAG OLAMINE
     Dosage: UNK UNK, QD
     Route: 048
  3. ELTROMBOPAG OLAMINE [Suspect]
     Active Substance: ELTROMBOPAG OLAMINE
     Dosage: 25 MG, QD (1 TABLET)
     Route: 048
  4. ELTROMBOPAG OLAMINE [Suspect]
     Active Substance: ELTROMBOPAG OLAMINE
     Dosage: 50 MG, QD (2 TABLET OF 25 MG)
     Route: 048

REACTIONS (10)
  - Platelet count decreased [Unknown]
  - Epistaxis [Unknown]
  - Cardiac disorder [Unknown]
  - Contusion [Unknown]
  - Limb discomfort [Unknown]
  - Illness [Unknown]
  - Petechiae [Unknown]
  - Pallor [Unknown]
  - Decreased immune responsiveness [Unknown]
  - Product supply issue [Unknown]
